FAERS Safety Report 9726070 (Version 1)
Quarter: 2013Q4

REPORT INFORMATION
  Report Type: Spontaneous
  Country: FR (occurrence: FR)
  Receive Date: 20131203
  Receipt Date: 20131203
  Transmission Date: 20140711
  Serious: Yes (Other)
  Sender: FDA-Public Use
  Company Number: FR-UCBSA-104390

PATIENT
  Sex: Female

DRUGS (2)
  1. CIMZIA [Suspect]
     Dosage: UNKNOWN DOSE
     Route: 058
  2. METHOTREXATE [Concomitant]

REACTIONS (1)
  - Dermatitis allergic [Unknown]
